FAERS Safety Report 12633573 (Version 1)
Quarter: 2016Q3

REPORT INFORMATION
  Report Type: Spontaneous
  Country: US (occurrence: None)
  Receive Date: 20160808
  Receipt Date: 20160808
  Transmission Date: 20161109
  Serious: Yes (Life-Threatening, Disabling, Other)
  Sender: FDA-Public Use
  Company Number: None

PATIENT
  Age: 30 Year
  Sex: Male
  Weight: 81.65 kg

DRUGS (3)
  1. LANSOPRAZOLE 30MG CPDR, 30 MG [Suspect]
     Active Substance: LANSOPRAZOLE
     Indication: VOCAL CORD DISORDER
     Dosage: 1 TABLET (S) IN THE MORNING TAKEN BY MOUTH
     Route: 048
     Dates: start: 20160719, end: 20160805
  2. LANSOPRAZOLE 30MG CPDR, 30 MG [Suspect]
     Active Substance: LANSOPRAZOLE
     Indication: GASTROOESOPHAGEAL REFLUX DISEASE
     Dosage: 1 TABLET (S) IN THE MORNING TAKEN BY MOUTH
     Route: 048
     Dates: start: 20160719, end: 20160805
  3. LANSOPRAZOLE 30MG CPDR, 30 MG [Suspect]
     Active Substance: LANSOPRAZOLE
     Indication: LARYNGOSPASM
     Dosage: 1 TABLET (S) IN THE MORNING TAKEN BY MOUTH
     Route: 048
     Dates: start: 20160719, end: 20160805

REACTIONS (6)
  - Nausea [None]
  - Blood pressure fluctuation [None]
  - Dizziness [None]
  - Chest pain [None]
  - Hypersensitivity [None]
  - Documented hypersensitivity to administered product [None]

NARRATIVE: CASE EVENT DATE: 20160719
